FAERS Safety Report 13706455 (Version 1)
Quarter: 2017Q2

REPORT INFORMATION
  Report Type: Spontaneous
  Country: JP (occurrence: JP)
  Receive Date: 20170630
  Receipt Date: 20170630
  Transmission Date: 20170830
  Serious: Yes (Other)
  Sender: FDA-Public Use
  Company Number: JP-PFIZER INC-2016514771

PATIENT
  Age: 74 Year
  Sex: Female
  Weight: 44.8 kg

DRUGS (3)
  1. METHOTREXATE SODIUM. [Suspect]
     Active Substance: METHOTREXATE SODIUM
     Indication: RHEUMATOID ARTHRITIS
     Dosage: UNK
     Dates: start: 1994
  2. METHOTREXATE SODIUM. [Suspect]
     Active Substance: METHOTREXATE SODIUM
     Dosage: 5 MG, WEEKLY
     Dates: start: 19970205
  3. TIOPRONIN [Concomitant]
     Active Substance: TIOPRONIN
     Indication: RHEUMATOID ARTHRITIS
     Dosage: UNK
     Dates: start: 1994

REACTIONS (1)
  - Aplastic anaemia [Unknown]
